FAERS Safety Report 16675023 (Version 1)
Quarter: 2019Q3

REPORT INFORMATION
  Report Type: Spontaneous
  Country: US (occurrence: US)
  Receive Date: 20190806
  Receipt Date: 20190806
  Transmission Date: 20191004
  Serious: No
  Sender: FDA-Public Use
  Company Number: US-SA-2019SA209227

PATIENT
  Sex: Female

DRUGS (14)
  1. AIMOVIG [Concomitant]
     Active Substance: ERENUMAB-AOOE
  2. METHYLPREDISOLONE [Concomitant]
     Active Substance: METHYLPREDNISOLONE
  3. FLUTICASONE PROPIONATE. [Concomitant]
     Active Substance: FLUTICASONE PROPIONATE
  4. DUPIXENT [Suspect]
     Active Substance: DUPILUMAB
     Dosage: 300 MG, QOW
     Route: 058
  5. NABUMETONE. [Concomitant]
     Active Substance: NABUMETONE
  6. METFORMIN HCL [Concomitant]
     Active Substance: METFORMIN HYDROCHLORIDE
  7. ESCITALOPRAM OXALATE. [Concomitant]
     Active Substance: ESCITALOPRAM OXALATE
  8. EPINASTINE. [Concomitant]
     Active Substance: EPINASTINE HYDROCHLORIDE
  9. CEPHALEXIN [CEFALEXIN] [Concomitant]
     Active Substance: CEPHALEXIN
  10. NARATRIPTAN [Concomitant]
     Active Substance: NARATRIPTAN HYDROCHLORIDE
  11. BEPREVE [Concomitant]
     Active Substance: BEPOTASTINE BESILATE
  12. VALACYCLOVIR [Concomitant]
     Active Substance: VALACYCLOVIR HYDROCHLORIDE
  13. PIMECROLIMUS. [Concomitant]
     Active Substance: PIMECROLIMUS
  14. PREDNISONE. [Concomitant]
     Active Substance: PREDNISONE

REACTIONS (1)
  - Skin swelling [Recovering/Resolving]
